FAERS Safety Report 4481634-5 (Version None)
Quarter: 2004Q4

REPORT INFORMATION
  Report Type: 
  Country: None (occurrence: None)
  Receive Date: 20041021
  Receipt Date: 20041005
  Transmission Date: 20050328
  Serious: Yes (Life-Threatening, Hospitalization, Disabling)
  Sender: FDA-Public Use
  Company Number: AU-MERCK-0410AUS00067

PATIENT
  Age: 64 Year
  Sex: Female

DRUGS (9)
  1. VIOXX [Suspect]
     Indication: OSTEOARTHRITIS
     Route: 048
     Dates: end: 20041005
  2. VIOXX [Suspect]
     Indication: PAIN
     Route: 048
     Dates: end: 20041005
  3. FOSAMAX [Concomitant]
     Route: 048
  4. ATORVASTATIN CALCIUM [Concomitant]
     Indication: HYPERLIPIDAEMIA
     Route: 048
  5. PITAVASTATIN CALCIUM [Concomitant]
     Indication: OSTEOPOROSIS
     Route: 065
  6. CALCIUM CITRATE [Concomitant]
     Indication: OSTEOPOROSIS
     Route: 065
  7. ERGOCALCIFEROL [Concomitant]
     Indication: OSTEOPOROSIS
     Route: 065
  8. NIZATIDINE [Concomitant]
     Indication: STOMACH DISCOMFORT
     Route: 065
  9. AMILORIDE HYDROCHLORIDE AND HYDROCHLOROTHIAZIDE [Concomitant]
     Route: 065

REACTIONS (9)
  - BLINDNESS TRANSIENT [None]
  - CEREBRAL HAEMORRHAGE [None]
  - CEREBROVASCULAR ACCIDENT [None]
  - CEREBROVASCULAR DISORDER [None]
  - DIFFICULTY IN WALKING [None]
  - GLIOBLASTOMA MULTIFORME [None]
  - MEMORY IMPAIRMENT [None]
  - SPEECH DISORDER [None]
  - VISUAL FIELD DEFECT [None]
